FAERS Safety Report 8138715-4 (Version None)
Quarter: 2012Q1

REPORT INFORMATION
  Report Type: 
  Country: None (occurrence: None)
  Receive Date: 20120215
  Receipt Date: 20120209
  Transmission Date: 20120608
  Serious: Yes (Hospitalization)
  Sender: FDA-Public Use
  Company Number: US-GLAXOSMITHKLINE-A0913508A

PATIENT
  Age: 77 Year
  Sex: Female

DRUGS (1)
  1. AVANDIA [Suspect]
     Indication: DIABETES MELLITUS
     Dosage: 8MG PER DAY
     Route: 048
     Dates: start: 20100401, end: 20100823

REACTIONS (10)
  - LEFT VENTRICULAR HYPERTROPHY [None]
  - PULMONARY HYPERTENSION [None]
  - CEREBROVASCULAR ACCIDENT [None]
  - SEPSIS [None]
  - EMBOLIC STROKE [None]
  - TOXIC ENCEPHALOPATHY [None]
  - CARDIAC DISORDER [None]
  - URINARY TRACT INFECTION [None]
  - CAROTID ARTERY STENOSIS [None]
  - METABOLIC ENCEPHALOPATHY [None]
